FAERS Safety Report 10886078 (Version 2)
Quarter: 2015Q1

REPORT INFORMATION
  Report Type: Spontaneous
  Country: FR (occurrence: FR)
  Receive Date: 20150304
  Receipt Date: 20150304
  Transmission Date: 20150721
  Serious: Yes (Hospitalization)
  Sender: FDA-Public Use
  Company Number: FR-SA-2015SA025163

PATIENT
  Age: 77 Year
  Sex: Female

DRUGS (13)
  1. ALPRAZOLAM. [Concomitant]
     Active Substance: ALPRAZOLAM
  2. INEXIUM [Concomitant]
     Active Substance: ESOMEPRAZOLE
  3. VITAMIN B12 [Concomitant]
     Active Substance: CYANOCOBALAMIN
  4. UVEDOSE [Concomitant]
     Active Substance: CHOLECALCIFEROL
  5. RIFADINE [Suspect]
     Active Substance: RIFAMPIN
     Route: 048
     Dates: start: 201502, end: 20150220
  6. LASILIX [Concomitant]
     Active Substance: FUROSEMIDE
  7. PARACETAMOL [Concomitant]
     Active Substance: ACETAMINOPHEN
  8. KARDEGIC [Concomitant]
     Active Substance: ASPIRIN LYSINE
  9. OXYNORM [Concomitant]
     Active Substance: OXYCODONE HYDROCHLORIDE
  10. MIKICORT [Concomitant]
  11. FUCIDINE [Suspect]
     Active Substance: FUSIDIC ACID
     Route: 048
     Dates: start: 201502, end: 20150220
  12. FORADIL [Concomitant]
     Active Substance: FORMOTEROL FUMARATE
  13. LYRICA [Concomitant]
     Active Substance: PREGABALIN

REACTIONS (5)
  - Rash macular [Unknown]
  - Abdominal pain upper [Unknown]
  - Nausea [Unknown]
  - General physical health deterioration [Unknown]
  - Skin ulcer [Unknown]

NARRATIVE: CASE EVENT DATE: 20150203
